FAERS Safety Report 9988605 (Version 1)
Quarter: 2014Q1

REPORT INFORMATION
  Report Type: Spontaneous
  Country: FR (occurrence: FR)
  Receive Date: 20140310
  Receipt Date: 20140310
  Transmission Date: 20141002
  Serious: Yes (Hospitalization, Other)
  Sender: FDA-Public Use
  Company Number: FR-009507513-1403FRA000524

PATIENT
  Sex: Female

DRUGS (4)
  1. NORSET [Suspect]
     Dosage: 2 DF, QD
     Route: 048
     Dates: end: 20140129
  2. NORSET [Suspect]
     Dosage: 3 DF, QD
     Route: 048
     Dates: start: 20140130, end: 20140218
  3. NORSET [Suspect]
     Dosage: 2 DF, QD
     Route: 048
     Dates: start: 20140219, end: 20140220
  4. SERESTA [Concomitant]
     Dosage: 10 MG, QD
     Dates: end: 20140219

REACTIONS (3)
  - Neoplasm malignant [Unknown]
  - Agitation [Unknown]
  - Dizziness [Unknown]
